FAERS Safety Report 12437146 (Version 1)
Quarter: 2016Q2

REPORT INFORMATION
  Report Type: Spontaneous
  Country: US (occurrence: None)
  Receive Date: 20160603
  Receipt Date: 20160603
  Transmission Date: 20160815
  Serious: No
  Sender: FDA-Public Use
  Company Number: None

PATIENT
  Age: 29 Year
  Sex: Female
  Weight: 78.47 kg

DRUGS (3)
  1. LEXAPRO [Concomitant]
     Active Substance: ESCITALOPRAM OXALATE
  2. IBUPROFEN. [Concomitant]
     Active Substance: IBUPROFEN
  3. NEXPLANON [Suspect]
     Active Substance: ETONOGESTREL

REACTIONS (2)
  - Implant site rash [None]
  - Implant site pruritus [None]

NARRATIVE: CASE EVENT DATE: 20160527
